FAERS Safety Report 20575291 (Version 1)
Quarter: 2022Q1

REPORT INFORMATION
  Report Type: Spontaneous
  Country: IT (occurrence: IT)
  Receive Date: 20220310
  Receipt Date: 20220310
  Transmission Date: 20220424
  Serious: Yes (Congenital Anomaly)
  Sender: FDA-Public Use
  Company Number: IT-NOVOPROD-896966

PATIENT
  Sex: Female
  Weight: 3.68 kg

DRUGS (2)
  1. LEVEMIR [Suspect]
     Active Substance: INSULIN DETEMIR
     Indication: Gestational diabetes
     Dosage: DELIVERY 2 TIMES A DAY
     Route: 064
     Dates: start: 20210301, end: 20210715
  2. NOVORAPID [Suspect]
     Active Substance: INSULIN ASPART
     Indication: Gestational diabetes
     Dosage: DELIVERY 3 TIMES A DAY
     Route: 064
     Dates: start: 20210301, end: 20210715

REACTIONS (2)
  - Vesicoureteric reflux [Recovered/Resolved]
  - Foetal exposure during pregnancy [Recovered/Resolved]

NARRATIVE: CASE EVENT DATE: 20210301
